FAERS Safety Report 4526468-8 (Version None)
Quarter: 2004Q4

REPORT INFORMATION
  Report Type: 
  Country: None (occurrence: None)
  Receive Date: 20041210
  Receipt Date: 20041129
  Transmission Date: 20050328
  Serious: Yes (Hospitalization)
  Sender: FDA-Public Use
  Company Number: HQWYE204303JUN04

PATIENT
  Age: 21 Year
  Sex: Female

DRUGS (12)
  1. RAPAMUNE [Suspect]
     Indication: PROPHYLAXIS AGAINST TRANSPLANT REJECTION
     Dosage: SEE IMAGE
     Route: 048
     Dates: start: 20040630, end: 20040101
  2. RAPAMUNE [Suspect]
     Indication: PROPHYLAXIS AGAINST TRANSPLANT REJECTION
     Dosage: SEE IMAGE
     Route: 048
     Dates: start: 20040127, end: 20040629
  3. RAPAMUNE [Suspect]
     Indication: PROPHYLAXIS AGAINST TRANSPLANT REJECTION
     Dosage: SEE IMAGE
     Route: 048
     Dates: start: 20040101
  4. RANITIDINE HYDROCHLORIDE [Concomitant]
  5. ACETAMINOPHEN [Concomitant]
  6. VITAMIN B COMPLEX (CALCIUM PANTOTHENATE/NICOTINAMIDE/PYRIDOXINE HYDROC [Concomitant]
  7. FERROGLYCINE SULFATE COMPLEX (FERROGLYCINE SULFATE COMPLEX) [Concomitant]
  8. KETOCONAZOLE [Concomitant]
  9. SODIUM BICARBONATE IN PLASTIC CONTAINER [Concomitant]
  10. MYCOPHENOLATE MOFETIL (MYCOPHENOLATE MOFETIL) [Concomitant]
  11. MYCOPHENOLATE MOFETIL (MYCOPHENOLATE MOFETIL) [Concomitant]
  12. CORTICOSTEROID NOS (CORTICOSTEROID NOS) [Concomitant]

REACTIONS (16)
  - BLOOD BICARBONATE DECREASED [None]
  - BLOOD IMMUNOGLOBULIN G DECREASED [None]
  - BLOOD IMMUNOGLOBULIN M DECREASED [None]
  - BLOOD LACTATE DEHYDROGENASE INCREASED [None]
  - BLOOD POTASSIUM INCREASED [None]
  - DEHYDRATION [None]
  - DIARRHOEA [None]
  - FEELING COLD [None]
  - GASTRITIS [None]
  - HEADACHE [None]
  - HYPOCHROMIC ANAEMIA [None]
  - IMMUNOSUPPRESSANT DRUG LEVEL DECREASED [None]
  - METABOLIC ACIDOSIS [None]
  - NEPHROPATHY [None]
  - PYREXIA [None]
  - RENAL IMPAIRMENT [None]
